FAERS Safety Report 8458549-0 (Version None)
Quarter: 2012Q2

REPORT INFORMATION
  Report Type: 
  Country: None (occurrence: None)
  Receive Date: 20120622
  Receipt Date: 20120614
  Transmission Date: 20120825
  Serious: No
  Sender: FDA-Public Use
  Company Number: US-PFIZER INC-2012142392

PATIENT
  Sex: Female
  Weight: 52.154 kg

DRUGS (5)
  1. LYRICA [Suspect]
     Indication: PHANTOM PAIN
  2. EXTRA STRENGTH TYLENOL [Suspect]
     Indication: HEADACHE
  3. TRAMADOL [Concomitant]
     Indication: PAIN
     Dosage: 50 MG, 3X/DAY
  4. LYRICA [Suspect]
     Indication: AMPUTATION
     Dosage: 50 MG, 3X/DAY (2 CAPSULES IN THE MORNING, AFTERNOON AND THREE CAPSULES IN THE EVENING)
     Route: 048
     Dates: start: 20120523, end: 20120612
  5. EXTRA STRENGTH TYLENOL [Suspect]
     Indication: PAIN
     Dosage: (2 TABLETS)
     Route: 048

REACTIONS (4)
  - DRUG INEFFECTIVE [None]
  - HEADACHE [None]
  - WEIGHT INCREASED [None]
  - HYPERSENSITIVITY [None]
